FAERS Safety Report 25862080 (Version 2)
Quarter: 2025Q4

REPORT INFORMATION
  Report Type: Spontaneous
  Country: US (occurrence: US)
  Receive Date: 20250930
  Receipt Date: 20251003
  Transmission Date: 20260118
  Serious: Yes (Other)
  Sender: BAXTER
  Company Number: US-BAXTER-2025BAX021140

PATIENT
  Age: 65 Year
  Sex: Female

DRUGS (11)
  1. DOXORUBICIN HYDROCHLORIDE [Suspect]
     Active Substance: DOXORUBICIN HYDROCHLORIDE
     Indication: Ovarian cancer
     Dosage: 60 MG (SUSPENSION 10 ML VIAL) IN 250 ML
     Route: 042
     Dates: start: 20250910, end: 20250910
  2. DOXORUBICIN HYDROCHLORIDE [Suspect]
     Active Substance: DOXORUBICIN HYDROCHLORIDE
     Dosage: 60 MG IN DEXTROSE 5% 300 ML INFUSION
     Route: 042
     Dates: end: 20250910
  3. HEPARIN SODIUM [Suspect]
     Active Substance: HEPARIN SODIUM
     Indication: Catheter management
     Dosage: LOCK FLUSH INJECTION, 500 UNIT, INTRACATHETER
     Route: 065
     Dates: start: 20250910
  4. SODIUM CHLORIDE [Suspect]
     Active Substance: SODIUM CHLORIDE
     Dosage: 0.9% (1-40 ML) (10 ML, INTRACATHETER)
     Route: 042
     Dates: start: 20250910, end: 20250910
  5. SODIUM CHLORIDE [Suspect]
     Active Substance: SODIUM CHLORIDE
     Dosage: 0.9%, 130 ML INFUSION (0 MG)
     Route: 042
     Dates: end: 20250910
  6. DEXTROSE [Suspect]
     Active Substance: DEXTROSE MONOHYDRATE
     Indication: Medication dilution
     Dosage: INFUSION; 250 ML (D5W BASE FLUID: 0264-7510-20)
     Route: 042
     Dates: start: 20250910, end: 20250910
  7. DEXTROSE [Suspect]
     Active Substance: DEXTROSE MONOHYDRATE
     Dosage: DEXTROSE 5 % 300 ML INFUSION; 250 ML (D5W BASE FLUID: 0264-7510-20)
     Route: 042
     Dates: end: 20250910
  8. DEXTROSE [Suspect]
     Active Substance: DEXTROSE MONOHYDRATE
     Dosage: DEXTROSE 5 % INFUSION; 0  ML
     Route: 042
     Dates: end: 20250910
  9. DECADRON [Concomitant]
     Active Substance: DEXAMETHASONE
     Indication: Premedication
     Dosage: 8 MG, IVP ROUTE
     Route: 042
     Dates: start: 20250910
  10. MVASI [Concomitant]
     Active Substance: BEVACIZUMAB-AWWB
     Indication: Chemotherapy
     Dosage: 500 MG IN NACI IV 0.9 % 130 ML INFUSION
     Route: 042
     Dates: start: 20250910, end: 20250910
  11. MAGNESIUM SULFATE [Concomitant]
     Active Substance: MAGNESIUM SULFATE
     Indication: Electrolyte substitution therapy
     Dosage: 4 G
     Route: 042
     Dates: start: 20250910, end: 20250910

REACTIONS (5)
  - Feeling hot [Recovering/Resolving]
  - Blood pressure systolic increased [Recovering/Resolving]
  - Flushing [Recovered/Resolved with Sequelae]
  - Erythema [Recovering/Resolving]
  - Chest discomfort [Recovered/Resolved with Sequelae]

NARRATIVE: CASE EVENT DATE: 20250910
